FAERS Safety Report 8252809-4 (Version None)
Quarter: 2012Q2

REPORT INFORMATION
  Report Type: 
  Country: None (occurrence: None)
  Receive Date: 20120402
  Receipt Date: 20111223
  Transmission Date: 20120825
  Serious: No
  Sender: FDA-Public Use
  Company Number: US-ABBOTT-11P-163-0886775-00

PATIENT
  Sex: Male

DRUGS (2)
  1. ANDROGEL [Suspect]
     Indication: PRODUCT USED FOR UNKNOWN INDICATION
     Dosage: 1 IN 1 DAY, PACKET
     Dates: end: 20090101
  2. ANDROGEL [Suspect]
     Dosage: 2 IN 1 DAY, PACKETS
     Dates: start: 20090101

REACTIONS (1)
  - BLOOD TESTOSTERONE ABNORMAL [None]
